FAERS Safety Report 8290746-X (Version None)
Quarter: 2012Q2

REPORT INFORMATION
  Report Type: 
  Country: None (occurrence: None)
  Receive Date: 20120417
  Receipt Date: 20120406
  Transmission Date: 20120825
  Serious: No
  Sender: FDA-Public Use
  Company Number: US-ACTELION-A-NJ2012-63084

PATIENT

DRUGS (2)
  1. EPOPROSTENOL SODIUM [Suspect]
     Indication: PULMONARY ARTERIAL HYPERTENSION
     Dosage: 30.56 NG/KG, PER MIN
     Route: 041
     Dates: start: 20111001
  2. PLAVIX [Concomitant]

REACTIONS (7)
  - PAINFUL RESPIRATION [None]
  - CHEST PAIN [None]
  - PAIN [None]
  - FLUSHING [None]
  - PLEURISY [None]
  - WEIGHT DECREASED [None]
  - PNEUMONIA [None]
